FAERS Safety Report 8601417-1 (Version None)
Quarter: 2012Q3

REPORT INFORMATION
  Report Type: 
  Country: None (occurrence: None)
  Receive Date: 20120817
  Receipt Date: 20100914
  Transmission Date: 20120928
  Serious: Yes (Death, Hospitalization)
  Sender: FDA-Public Use
  Company Number: US-BRISTOL-MYERS SQUIBB COMPANY-15284748

PATIENT
  Age: 40 Year
  Sex: Female

DRUGS (3)
  1. SPRYCEL [Suspect]
  2. HYDREA [Suspect]
  3. TASIGNA [Suspect]

REACTIONS (4)
  - PLEURAL EFFUSION [None]
  - SEPSIS [None]
  - WHITE BLOOD CELL COUNT INCREASED [None]
  - THROMBOCYTOPENIA [None]
